FAERS Safety Report 4758680-7 (Version None)
Quarter: 2005Q3

REPORT INFORMATION
  Report Type: 
  Country: None (occurrence: None)
  Receive Date: 20050829
  Receipt Date: 20050211
  Transmission Date: 20060218
  Serious: Yes (Hospitalization, Other)
  Sender: FDA-Public Use
  Company Number: 10286

PATIENT
  Age: 55 Year
  Sex: Female
  Weight: 55 kg

DRUGS (7)
  1. VINCRISTINE [Suspect]
     Indication: AMYLOIDOSIS
     Dosage: 0.4 MG DAILY IV
     Route: 042
     Dates: start: 20020918, end: 20020921
  2. VINCRISTINE [Suspect]
     Indication: AMYLOIDOSIS
     Dates: start: 20021016, end: 20021019
  3. DOXORUBICIN [Suspect]
     Indication: AMYLOIDOSIS
     Dosage: 9 MG/M2 DAILY IV
     Route: 042
     Dates: start: 20020918, end: 20020921
  4. DOXORUBICIN [Suspect]
     Indication: AMYLOIDOSIS
     Dates: start: 20021016, end: 20021019
  5. DEXAMETHASONE [Suspect]
     Indication: AMYLOIDOSIS
     Dosage: 40 MG DAILY IV
     Route: 042
     Dates: start: 20020918, end: 20020921
  6. DEXAMETHASONE [Suspect]
     Indication: AMYLOIDOSIS
     Dates: start: 20021016, end: 20021019
  7. MELPHALAN [Suspect]
     Indication: AMYLOIDOSIS
     Dates: start: 20030113, end: 20030114

REACTIONS (6)
  - CYTOMEGALOVIRUS INFECTION [None]
  - FLUID RETENTION [None]
  - GENERALISED OEDEMA [None]
  - PLEURAL EFFUSION [None]
  - POST PROCEDURAL COMPLICATION [None]
  - WHITE BLOOD CELL COUNT DECREASED [None]
